FAERS Safety Report 25472816 (Version 1)
Quarter: 2025Q2

REPORT INFORMATION
  Report Type: Report from Study
  Country: CR (occurrence: CR)
  Receive Date: 20250624
  Receipt Date: 20250624
  Transmission Date: 20250717
  Serious: Yes (Disabling)
  Sender: NOVARTIS
  Company Number: CR-002147023-NVSC2025CR099798

PATIENT
  Sex: Female

DRUGS (2)
  1. EXFORGE HCT [Suspect]
     Active Substance: AMLODIPINE BESYLATE\HYDROCHLOROTHIAZIDE\VALSARTAN
     Indication: Hypertension
     Dosage: 5 MG AMLODIPINE BESILATE, 160 MG VALSARTAN, AND 25 MG HYDROCHLOROTHIAZIDE, QD
     Route: 048
     Dates: start: 2025
  2. AMLODIPINE [Suspect]
     Active Substance: AMLODIPINE BESYLATE
     Indication: Hypertension
     Dosage: 5 MG, QD
     Route: 048

REACTIONS (7)
  - Drug intolerance [Recovering/Resolving]
  - Presyncope [Unknown]
  - Gait disturbance [Unknown]
  - Blood pressure decreased [Unknown]
  - Decreased appetite [Unknown]
  - Nausea [Unknown]
  - Eye disorder [Unknown]
